FAERS Safety Report 9546339 (Version 6)
Quarter: 2015Q1

REPORT INFORMATION
  Report Type: Spontaneous
  Country: GB (occurrence: GB)
  Receive Date: 20130923
  Receipt Date: 20140321
  Transmission Date: 20150721
  Serious: Yes (Other)
  Sender: FDA-Public Use
  Company Number: GB-MYLANLABS-2013S1020556

PATIENT
  Age: 78 Year
  Sex: Female

DRUGS (4)
  1. LOSARTAN [Suspect]
     Active Substance: LOSARTAN
     Indication: PRODUCT USED FOR UNKNOWN INDICATION
  2. OLANZAPINE. [Suspect]
     Active Substance: OLANZAPINE
     Indication: VISUAL IMPAIRMENT
  3. RAMIPRIL. [Suspect]
     Active Substance: RAMIPRIL
     Indication: PRODUCT USED FOR UNKNOWN INDICATION
  4. SERTRALINE [Suspect]
     Active Substance: SERTRALINE HYDROCHLORIDE
     Indication: PRODUCT USED FOR UNKNOWN INDICATION

REACTIONS (12)
  - Urinary tract infection [Unknown]
  - Pallor [Unknown]
  - Back pain [Unknown]
  - Constipation [Unknown]
  - Feeling cold [Unknown]
  - Hallucination [Unknown]
  - Gait disturbance [Unknown]
  - Fall [Unknown]
  - Sopor [Unknown]
  - Condition aggravated [Unknown]
  - Suspiciousness [Unknown]
  - Confusional state [Unknown]
